FAERS Safety Report 5151667-4 (Version None)
Quarter: 2006Q4

REPORT INFORMATION
  Report Type: 
  Country: None (occurrence: None)
  Receive Date: 20061115
  Receipt Date: 20061107
  Transmission Date: 20070319
  Serious: Yes (Hospitalization)
  Sender: FDA-Public Use
  Company Number: FR-ROCHE-470481

PATIENT
  Age: 41 Year
  Sex: Female

DRUGS (2)
  1. XELODA [Suspect]
     Route: 065
  2. CISPLATIN [Concomitant]

REACTIONS (3)
  - APLASIA [None]
  - DIARRHOEA [None]
  - STOMATITIS [None]
